FAERS Safety Report 22674777 (Version 2)
Quarter: 2023Q4

REPORT INFORMATION
  Report Type: Spontaneous
  Country: JP (occurrence: JP)
  Receive Date: 20230705
  Receipt Date: 20231120
  Transmission Date: 20240109
  Serious: Yes (Hospitalization)
  Sender: FDA-Public Use
  Company Number: JP-MSD-2306JPN004312JAA

PATIENT
  Sex: Male

DRUGS (5)
  1. LAGEVRIO [Suspect]
     Active Substance: MOLNUPIRAVIR
     Dosage: 8 DOSAGE FORM/DAY
     Route: 064
     Dates: start: 20220521, end: 20220525
  2. PROCATEROL HYDROCHLORIDE [Concomitant]
     Active Substance: PROCATEROL HYDROCHLORIDE
     Dosage: 2 INHALATIONS PER DAY AS NEEDED, ABOUT 2 DAYS/6 MONTHS
     Route: 064
     Dates: start: 20070101
  3. FEXOFENADINE HYDROCHLORIDE\PSEUDOEPHEDRINE HYDROCHLORIDE [Concomitant]
     Active Substance: FEXOFENADINE HYDROCHLORIDE\PSEUDOEPHEDRINE HYDROCHLORIDE
     Dosage: 4 DOSAGE FORM/DAY
     Route: 064
     Dates: start: 20220201, end: 202205
  4. FEXOFENADINE HYDROCHLORIDE\PSEUDOEPHEDRINE HYDROCHLORIDE [Concomitant]
     Active Substance: FEXOFENADINE HYDROCHLORIDE\PSEUDOEPHEDRINE HYDROCHLORIDE
     Dosage: 4 DOSAGE FORM/DAY
     Dates: start: 202205, end: 20220714
  5. FOLIC ACID [Concomitant]
     Active Substance: FOLIC ACID
     Dosage: UNK
     Route: 064

REACTIONS (2)
  - Jaundice neonatal [Recovered/Resolved]
  - Foetal exposure during pregnancy [Unknown]

NARRATIVE: CASE EVENT DATE: 20221101
